FAERS Safety Report 20823774 (Version 1)
Quarter: 2022Q2

REPORT INFORMATION
  Report Type: Spontaneous
  Country: US (occurrence: US)
  Receive Date: 20220513
  Receipt Date: 20220513
  Transmission Date: 20220721
  Serious: Yes (Other)
  Sender: FDA-Public Use
  Company Number: US-SUN PHARMACEUTICAL INDUSTRIES LTD-2022R1-335776

PATIENT
  Sex: Female

DRUGS (1)
  1. CEQUA [Suspect]
     Active Substance: CYCLOSPORINE
     Indication: Cataract
     Dosage: UNK
     Route: 065

REACTIONS (6)
  - Sinusitis [Recovered/Resolved]
  - Vertigo [Recovered/Resolved]
  - Eye pain [Recovered/Resolved]
  - Rhinorrhoea [Recovered/Resolved]
  - Photophobia [Recovered/Resolved]
  - Therapy cessation [Unknown]

NARRATIVE: CASE EVENT DATE: 20220424
